FAERS Safety Report 8002145-6 (Version None)
Quarter: 2011Q4

REPORT INFORMATION
  Report Type: 
  Country: None (occurrence: None)
  Receive Date: 20111222
  Receipt Date: 20111213
  Transmission Date: 20120403
  Serious: Yes (Other)
  Sender: FDA-Public Use
  Company Number: US-CELGENEUS-163-20785-11121966

PATIENT
  Sex: Female
  Weight: 28 kg

DRUGS (7)
  1. THALOMID [Suspect]
     Indication: HISTIOCYTOSIS
     Dosage: 50 MILLIGRAM
     Route: 048
     Dates: start: 20110801
  2. THALOMID [Suspect]
     Dosage: 100 MILLIGRAM
     Route: 048
     Dates: start: 20111001
  3. HALOPERIDOL [Concomitant]
     Route: 065
  4. ONDANSETRON [Concomitant]
     Route: 065
  5. APAP W/ CODEINE [Concomitant]
     Route: 065
  6. MONTELUKAST SODIUM [Concomitant]
     Route: 065
  7. COTRIM [Concomitant]
     Route: 065

REACTIONS (1)
  - ACTIVATED PARTIAL THROMBOPLASTIN TIME PROLONGED [None]
